FAERS Safety Report 7300187-7 (Version None)
Quarter: 2011Q1

REPORT INFORMATION
  Report Type: 
  Country: None (occurrence: None)
  Receive Date: 20110217
  Receipt Date: 20110209
  Transmission Date: 20110831
  Serious: Yes (Other)
  Sender: FDA-Public Use
  Company Number: US-BIOGENIDEC-2011BI004921

PATIENT
  Age: 61 Year
  Sex: Female

DRUGS (2)
  1. AVONEX [Suspect]
     Indication: MULTIPLE SCLEROSIS
     Route: 030
     Dates: start: 20090610
  2. AVONEX [Suspect]
     Route: 030
     Dates: start: 19960905, end: 20031231

REACTIONS (1)
  - LENTIGO MALIGNA STAGE UNSPECIFIED [None]
